FAERS Safety Report 11771115 (Version 3)
Quarter: 2016Q1

REPORT INFORMATION
  Report Type: Spontaneous
  Country: DE (occurrence: DE)
  Receive Date: 20151124
  Receipt Date: 20160120
  Transmission Date: 20160525
  Serious: Yes (Hospitalization)
  Sender: FDA-Public Use
  Company Number: DE-AMGEN-DEUSP2015123381

PATIENT
  Age: 55 Year
  Sex: Female

DRUGS (7)
  1. NAPROXEN. [Concomitant]
     Active Substance: NAPROXEN
     Indication: ANKYLOSING SPONDYLITIS
     Dosage: 500 MG, 2X/DAY, 1-1-0
  2. PANTOZOL [Concomitant]
     Active Substance: PANTOPRAZOLE SODIUM
     Indication: GASTRITIS
     Dosage: 20 MG, 1X/DAY, 1-0-0
  3. MOVICOL [Concomitant]
     Active Substance: POLYETHYLENE GLYCOL 3350\POTASSIUM CHLORIDE\SODIUM BICARBONATE\SODIUM CHLORIDE
     Dosage: UNK
  4. PALEXIA [Concomitant]
     Active Substance: TAPENTADOL HYDROCHLORIDE
     Indication: PAIN
     Dosage: 200 MG, 2X/DAY, 1-0-1
     Dates: start: 201103
  5. ENBREL [Suspect]
     Active Substance: ETANERCEPT
     Indication: ANKYLOSING SPONDYLITIS
     Dosage: 50 MG, WEEKLY EVERY THURSDAY
     Route: 058
     Dates: start: 201508
  6. LYRICA [Concomitant]
     Active Substance: PREGABALIN
     Indication: NEURALGIA
     Dosage: 150 MG, 3X/DAY, 1-1-1
  7. SIMVA [Concomitant]
     Indication: HYPERCHOLESTEROLAEMIA
     Dosage: 40 MG, 1X/DAY, 0-0-1

REACTIONS (11)
  - Pyrexia [Recovered/Resolved]
  - Fatigue [Recovered/Resolved]
  - Eosinophil count increased [Unknown]
  - Hypersomnia [Not Recovered/Not Resolved]
  - Disease recurrence [Recovered/Resolved]
  - Blood thyroid stimulating hormone decreased [Unknown]
  - Lipase increased [Unknown]
  - Cough [Recovered/Resolved]
  - Thyroxine decreased [Unknown]
  - Haemoglobin increased [Unknown]
  - Red blood cell count increased [Unknown]

NARRATIVE: CASE EVENT DATE: 20150910
